FAERS Safety Report 5240711-1 (Version None)
Quarter: 2007Q1

REPORT INFORMATION
  Report Type: 
  Country: None (occurrence: None)
  Receive Date: 20061208
  Receipt Date: 20050919
  Transmission Date: 20070707
  Serious: Yes (Other)
  Sender: FDA-Public Use
  Company Number: 2005UW13860

PATIENT
  Age: 59 Year
  Sex: Male
  Weight: 71.667 kg

DRUGS (8)
  1. CRESTOR [Suspect]
     Indication: ARTERIOSCLEROSIS
     Dosage: 5 MG QOD PO
     Route: 048
  2. CRESTOR [Suspect]
     Indication: BLOOD CHOLESTEROL INCREASED
     Dosage: 5 MG QOD PO
     Route: 048
  3. CRESTOR [Suspect]
     Indication: ARTERIOSCLEROSIS
     Dosage: 5 MG QD PO
     Route: 048
     Dates: start: 20050415
  4. CRESTOR [Suspect]
     Indication: BLOOD CHOLESTEROL INCREASED
     Dosage: 5 MG QD PO
     Route: 048
     Dates: start: 20050415
  5. PURINETHOL [Suspect]
     Indication: COLITIS ULCERATIVE
     Dosage: 50 MG
     Dates: start: 20040101
  6. NEXIUM [Concomitant]
  7. ASPIRIN [Concomitant]
  8. ZETIA [Concomitant]

REACTIONS (3)
  - DRUG INTERACTION [None]
  - DRUG LEVEL INCREASED [None]
  - HEPATIC ENZYME INCREASED [None]
